FAERS Safety Report 5427475-3 (Version None)
Quarter: 2007Q3

REPORT INFORMATION
  Report Type: 
  Country: None (occurrence: None)
  Receive Date: 20070824
  Receipt Date: 20070824
  Transmission Date: 20080115
  Serious: No
  Sender: FDA-Public Use
  Company Number: None

PATIENT
  Sex: Male
  Weight: 90.7194 kg

DRUGS (2)
  1. MAGNEVIST [Suspect]
     Indication: BACK PAIN
     Dosage: 20MLS SINGLE DOSE IV BOLUS
     Route: 042
     Dates: start: 20041230, end: 20041230
  2. MAGNEVIST [Suspect]
     Indication: SPINAL LAMINECTOMY
     Dosage: 20MLS SINGLE DOSE IV BOLUS
     Route: 042
     Dates: start: 20041230, end: 20041230

REACTIONS (1)
  - UNEVALUABLE EVENT [None]
